FAERS Safety Report 4357328-3 (Version None)
Quarter: 2004Q2

REPORT INFORMATION
  Report Type: 
  Country: None (occurrence: None)
  Receive Date: 20040506
  Receipt Date: 20040427
  Transmission Date: 20050107
  Serious: Yes (Other)
  Sender: FDA-Public Use
  Company Number: 2004028621

PATIENT
  Sex: Female
  Weight: 82.5547 kg

DRUGS (5)
  1. LIPITOR [Suspect]
     Indication: BLOOD CHOLESTEROL INCREASED
     Dosage: 10 MG (DAILY), ORAL
     Route: 048
  2. METOPROLOL (METOPROLOL) [Suspect]
     Indication: BLOOD PRESSURE
     Dosage: (DAILY)
  3. CLOPIDOGREL BISULFATE [Suspect]
     Indication: ILL-DEFINED DISORDER
  4. DYAZIDE [Concomitant]
  5. DIGOXIN [Concomitant]

REACTIONS (16)
  - AMNESIA [None]
  - ASTHENIA [None]
  - BACK PAIN [None]
  - BLOOD CHOLESTEROL INCREASED [None]
  - BLOOD PRESSURE INCREASED [None]
  - BRAIN STEM INFARCTION [None]
  - CARDIOACTIVE DRUG LEVEL BELOW THERAPEUTIC [None]
  - CHEST PAIN [None]
  - DEPRESSION [None]
  - DIZZINESS [None]
  - GASTRITIS [None]
  - NECK PAIN [None]
  - SPEECH DISORDER [None]
  - SUPRAVENTRICULAR TACHYCARDIA [None]
  - TREATMENT NONCOMPLIANCE [None]
  - WEIGHT DECREASED [None]
